FAERS Safety Report 6453506-8 (Version None)
Quarter: 2009Q4

REPORT INFORMATION
  Report Type: 
  Country: None (occurrence: None)
  Receive Date: 20091124
  Receipt Date: 20091113
  Transmission Date: 20100525
  Serious: Yes (Death, Congenital Anomaly)
  Sender: FDA-Public Use
  Company Number: US-BAYER-200932318NA

PATIENT

DRUGS (5)
  1. YAZ [Suspect]
     Indication: CONTRACEPTION
     Route: 064
     Dates: start: 20080601, end: 20081201
  2. REBIF [Suspect]
     Indication: MULTIPLE SCLEROSIS
     Dosage: MOTHER RECEIVED 44 MCG SQ INJECTION 3 TIMES/WEEK
     Route: 064
     Dates: start: 20080809, end: 20081201
  3. FLEXERIL [Suspect]
     Indication: MUSCLE SPASMS
     Dosage: 20 MG ONCE DAILY TO MOTHER
     Route: 064
  4. LOVENOX [Suspect]
     Indication: OBSTETRICAL PULMONARY EMBOLISM
  5. NORCO [Concomitant]
     Indication: PAIN
     Dosage: 1 TO 2 EVERY 4 HOURS AS REQUIRED FOR PAIN

REACTIONS (1)
  - SPINA BIFIDA [None]
